FAERS Safety Report 15004157 (Version 2)
Quarter: 2018Q4

REPORT INFORMATION
  Report Type: Spontaneous
  Country: US (occurrence: US)
  Receive Date: 20180613
  Receipt Date: 20181221
  Transmission Date: 20190204
  Serious: Yes (Other)
  Sender: FDA-Public Use
  Company Number: US-BRISTOL-MYERS SQUIBB COMPANY-BMS-2018-051800

PATIENT
  Age: 31 Year
  Sex: Female
  Weight: 63.5 kg

DRUGS (3)
  1. SPRYCEL [Suspect]
     Active Substance: DASATINIB
     Indication: PRODUCT USED FOR UNKNOWN INDICATION
     Dosage: 70 MG, UNK
     Route: 048
  2. MULTIVITAMIN                       /02371501/ [Concomitant]
     Indication: PRODUCT USED FOR UNKNOWN INDICATION
     Route: 065
  3. SPRYCEL [Suspect]
     Active Substance: DASATINIB
     Indication: CHRONIC MYELOID LEUKAEMIA
     Dosage: 100 MG, UNK
     Route: 048
     Dates: start: 201801

REACTIONS (11)
  - Diarrhoea [Unknown]
  - Dry skin [Recovered/Resolved]
  - Fatigue [Unknown]
  - Flushing [Recovered/Resolved]
  - Arthralgia [Unknown]
  - Pruritus [Recovered/Resolved]
  - Anal fissure [Unknown]
  - Constipation [Unknown]
  - Rash [Recovered/Resolved]
  - Blister [Recovered/Resolved]
  - Myalgia [Recovered/Resolved]

NARRATIVE: CASE EVENT DATE: 201801
